FAERS Safety Report 7843197-3 (Version None)
Quarter: 2011Q4

REPORT INFORMATION
  Report Type: 
  Country: None (occurrence: None)
  Receive Date: 20111025
  Receipt Date: 20111019
  Transmission Date: 20120403
  Serious: No
  Sender: FDA-Public Use
  Company Number: US-PFIZER INC-2011252697

PATIENT
  Sex: Female
  Weight: 68 kg

DRUGS (3)
  1. IBUPROFEN (ADVIL) [Suspect]
     Indication: BACK PAIN
     Dosage: 200 MG, EVERY 4 HOURS
     Route: 048
     Dates: start: 20110901
  2. IBUPROFEN (ADVIL) [Suspect]
     Dosage: 200 MG, EVERY 6 HOURS
     Route: 048
  3. IBUPROFEN (ADVIL) [Suspect]
     Dosage: 2 DF, EVERY 6 HOURS
     Route: 048
     Dates: end: 20111019

REACTIONS (3)
  - DRUG INEFFECTIVE [None]
  - MUSCULOSKELETAL DISCOMFORT [None]
  - OVERDOSE [None]
